FAERS Safety Report 21087797 (Version 1)
Quarter: 2022Q3

REPORT INFORMATION
  Report Type: Spontaneous
  Country: GB (occurrence: GB)
  Receive Date: 20220715
  Receipt Date: 20220715
  Transmission Date: 20221026
  Serious: Yes (Other)
  Sender: FDA-Public Use
  Company Number: GB-MHRA-TPP17417871C7627604YC1656419137670

PATIENT
  Age: 75 Year
  Sex: Male
  Weight: 63 kg

DRUGS (8)
  1. CODEINE [Suspect]
     Active Substance: CODEINE
     Indication: Ill-defined disorder
     Dosage: UNK
     Route: 065
     Dates: start: 20220607
  2. CETIRIZINE [Concomitant]
     Active Substance: CETIRIZINE HYDROCHLORIDE
     Indication: Product used for unknown indication
     Dosage: 1 DOSAGE FORM, AS NECESSARY, TAKE ONE DAILY IF NEEDED FOR SYMPTOMS OF ALLERGY
     Route: 065
     Dates: start: 20220607
  3. DOXAZOSIN [Concomitant]
     Active Substance: DOXAZOSIN MESYLATE
     Indication: Product used for unknown indication
     Dosage: 1 DOSAGE FORM, 1 DOSE, TAKE ONE TABLET DAILY
     Route: 065
     Dates: start: 20210510
  4. FINASTERIDE [Concomitant]
     Active Substance: FINASTERIDE
     Indication: Product used for unknown indication
     Dosage: 1 DOSAGE FORM, 1 DOSE, TAKE ONE DAILY
     Route: 065
     Dates: start: 20210510
  5. POLYETHYLENE GLYCOL 3350\POTASSIUM CHLORIDE\SODIUM BICARBONATE\SODIUM [Concomitant]
     Active Substance: POLYETHYLENE GLYCOL 3350\POTASSIUM CHLORIDE\SODIUM BICARBONATE\SODIUM CHLORIDE
     Indication: Product used for unknown indication
     Dosage: 1 DOSAGE FORM, 2 DOSE, 1 TO BE TAKEN TWICE DAILY
     Route: 065
     Dates: start: 20220511, end: 20220521
  6. OTOMIZE [Concomitant]
     Indication: Product used for unknown indication
     Dosage: 1 DOSAGE FORM, 3 DOSE, TO BE TAKEN THREE TIMES DAILY
     Route: 065
     Dates: start: 20220511, end: 20220518
  7. ROSUVASTATIN [Concomitant]
     Active Substance: ROSUVASTATIN
     Indication: Product used for unknown indication
     Dosage: 1 DOSAGE FORM, 1 DOSE, TAKE ONE DAILY AT NIGHT FOR CHOLESTEROL
     Route: 065
     Dates: start: 20220607
  8. UNIROID [Concomitant]
     Indication: Product used for unknown indication
     Dosage: 1 DOSAGE FORM, 2 DOSE, TO BE TAKEN TWICE DAILY + AFTER BOWEL MOVEMENT
     Route: 065
     Dates: start: 20220511, end: 20220518

REACTIONS (1)
  - Throat tightness [Recovered/Resolved]

NARRATIVE: CASE EVENT DATE: 20220628
